FAERS Safety Report 20024466 (Version 2)
Quarter: 2021Q4

REPORT INFORMATION
  Report Type: Report from Study
  Country: NL (occurrence: NL)
  Receive Date: 20211102
  Receipt Date: 20211201
  Transmission Date: 20220303
  Serious: Yes (Hospitalization, Other)
  Sender: FDA-Public Use
  Company Number: NL-HRARD-2021000302

PATIENT
  Age: 50 Year
  Sex: Female
  Weight: 80 kg

DRUGS (3)
  1. KETOCONAZOLE [Suspect]
     Active Substance: KETOCONAZOLE
     Indication: Cushing^s syndrome
     Dosage: 600 MILLIGRAM, QD (TITRATED FROM 400 MG PER DAY UP TO 600 MG PER DAY)
     Dates: start: 20201210, end: 20210117
  2. KETOCONAZOLE [Suspect]
     Active Substance: KETOCONAZOLE
     Dosage: 800 MILLIGRAM, QD
     Dates: start: 20210118, end: 20210823
  3. METYRAPONE [Concomitant]
     Active Substance: METYRAPONE
     Indication: Cushing^s syndrome
     Dosage: 1500 MILLIGRAM, QD

REACTIONS (6)
  - Peripheral artery occlusion [Recovered/Resolved]
  - Myalgia [Recovered/Resolved]
  - Gamma-glutamyltransferase increased [Not Recovered/Not Resolved]
  - Dizziness [Recovered/Resolved]
  - Nausea [Recovered/Resolved]
  - Arthralgia [Recovered/Resolved]

NARRATIVE: CASE EVENT DATE: 20210121
